FAERS Safety Report 19896365 (Version 5)
Quarter: 2022Q2

REPORT INFORMATION
  Report Type: Spontaneous
  Country: US (occurrence: US)
  Receive Date: 20210929
  Receipt Date: 20220413
  Transmission Date: 20220721
  Serious: Yes (Hospitalization, Other)
  Sender: FDA-Public Use
  Company Number: US-PFIZER INC-202101243624

PATIENT
  Age: 73 Year
  Sex: Female

DRUGS (1)
  1. METHOTREXATE SODIUM [Suspect]
     Active Substance: METHOTREXATE SODIUM
     Dosage: UNK

REACTIONS (9)
  - Pain [Unknown]
  - Skin discolouration [Unknown]
  - Near death experience [Unknown]
  - Movement disorder [Unknown]
  - White blood cell count decreased [Unknown]
  - Bone marrow disorder [Unknown]
  - Haemoglobin abnormal [Unknown]
  - Drug hypersensitivity [Unknown]
  - Gait disturbance [Unknown]

NARRATIVE: CASE EVENT DATE: 20210901
